FAERS Safety Report 7562953-2 (Version None)
Quarter: 2011Q2

REPORT INFORMATION
  Report Type: 
  Country: None (occurrence: None)
  Receive Date: 20110615
  Receipt Date: 20110608
  Transmission Date: 20111010
  Serious: Yes (Hospitalization)
  Sender: FDA-Public Use
  Company Number: ATE-11-04

PATIENT
  Age: 50 Year
  Sex: Male

DRUGS (10)
  1. BENZTROPINE MESYLATE [Concomitant]
  2. FERROUS SULFATE TAB [Concomitant]
  3. ATENOLOL [Suspect]
     Indication: HYPERTENSION
  4. SITAGLIPTIN/METFORMIN [Concomitant]
  5. FENOFIBRATE [Concomitant]
  6. LISINOPRIL [Concomitant]
  7. CLONAZEPAM [Concomitant]
  8. ASPIRIN [Concomitant]
  9. RISPERIDONE [Concomitant]
  10. SIMVASTATIN [Concomitant]

REACTIONS (10)
  - RENAL FAILURE ACUTE [None]
  - ATRIOVENTRICULAR BLOCK FIRST DEGREE [None]
  - LOSS OF CONSCIOUSNESS [None]
  - HYPOTENSION [None]
  - ELECTROCARDIOGRAM QRS COMPLEX PROLONGED [None]
  - ASTHENIA [None]
  - DIALYSIS [None]
  - WHEELCHAIR USER [None]
  - HYPERKALAEMIA [None]
  - PAIN [None]
